FAERS Safety Report 9495436 (Version 2)
Quarter: 2013Q3

REPORT INFORMATION
  Report Type: Spontaneous
  Country: US (occurrence: US)
  Receive Date: 20130903
  Receipt Date: 20130913
  Transmission Date: 20140515
  Serious: No
  Sender: FDA-Public Use
  Company Number: US-PFIZER INC-2013251044

PATIENT
  Sex: Female

DRUGS (2)
  1. ATORVASTATIN CALCIUM [Suspect]
     Dosage: 10 MG, DAILY
  2. PRAVASTATIN SODIUM [Suspect]
     Dosage: 20 MG, DAILY

REACTIONS (4)
  - Feeling abnormal [Unknown]
  - Back disorder [Unknown]
  - Arthropathy [Unknown]
  - Pain [Unknown]
